FAERS Safety Report 5409921-4 (Version None)
Quarter: 2007Q3

REPORT INFORMATION
  Report Type: 
  Country: None (occurrence: None)
  Receive Date: 20070809
  Receipt Date: 20070730
  Transmission Date: 20080115
  Serious: Yes (Hospitalization, Other)
  Sender: FDA-Public Use
  Company Number: JP-PFIZER INC-2007044680

PATIENT
  Sex: Male
  Weight: 61.2 kg

DRUGS (5)
  1. LIPITOR [Suspect]
     Indication: HYPERLIPIDAEMIA
     Dosage: DAILY DOSE:5MG
     Route: 048
     Dates: start: 20070302, end: 20070530
  2. INSULIN [Concomitant]
     Indication: DIABETES MELLITUS
     Route: 042
  3. AMARYL [Concomitant]
     Route: 048
  4. NOVORAPID [Concomitant]
     Route: 058
     Dates: start: 20040101
  5. NOVOLIN N [Concomitant]
     Route: 058
     Dates: start: 20040101

REACTIONS (5)
  - ANOREXIA [None]
  - JAUNDICE [None]
  - LIVER DISORDER [None]
  - MALAISE [None]
  - PANCREATIC CARCINOMA [None]
